FAERS Safety Report 5165028-5 (Version None)
Quarter: 2006Q4

REPORT INFORMATION
  Report Type: 
  Country: None (occurrence: None)
  Receive Date: 20061124
  Receipt Date: 20061114
  Transmission Date: 20070319
  Serious: Yes (Other)
  Sender: FDA-Public Use
  Company Number: 2006125414

PATIENT
  Age: 76 Year
  Sex: Female

DRUGS (6)
  1. CARDURA [Suspect]
     Indication: HYPERTENSION
     Dosage: 4 MG (4 MG, FREQUENCY: DAILY INTERVAL: EVERY DAY)
  2. CLINDAMYCIN PHOSPHATE [Suspect]
     Indication: INFECTION
     Dosage: 2400 MG (600 MG, FREQUENCY: QID INTERVAL: EVERY DAY), ORAL
     Route: 048
  3. CLINDAMYCIN HYDROCHLORIDE [Suspect]
     Indication: INFECTION
     Dosage: 1800 MG (450 MG, FREQUENCY: QID INTERVAL: EVERY DAY); ORAL
     Route: 048
  4. FUCIDINE CAP [Suspect]
     Indication: INFECTION
     Dosage: 1500 MG (500 MG, 3 IN 1 D) ORAL
     Route: 048
  5. ATARAX [Concomitant]
  6. DRUG, UNSPECIFIED [Concomitant]

REACTIONS (2)
  - INTERVERTEBRAL DISCITIS [None]
  - JAUNDICE [None]
